FAERS Safety Report 10643500 (Version 1)
Quarter: 2014Q4

REPORT INFORMATION
  Report Type: Spontaneous
  Country: FR (occurrence: FR)
  Receive Date: 20141210
  Receipt Date: 20141210
  Transmission Date: 20150529
  Serious: Yes (Other)
  Sender: FDA-Public Use
  Company Number: FR-EISAI MEDICAL RESEARCH-EC-2014-002015

PATIENT
  Age: 51 Year
  Sex: Male

DRUGS (5)
  1. FYCOMPA [Suspect]
     Active Substance: PERAMPANEL
     Indication: EPILEPSY
     Route: 048
     Dates: start: 201409, end: 201409
  2. KEPPRA [Concomitant]
     Active Substance: LEVETIRACETAM
     Dates: start: 2014
  3. FYCOMPA [Suspect]
     Active Substance: PERAMPANEL
     Route: 048
     Dates: start: 201409, end: 201409
  4. URBANYL [Concomitant]
     Active Substance: CLOBAZAM
     Dates: start: 2014
  5. ZEBINIX [Concomitant]
     Active Substance: ESLICARBAZEPINE ACETATE
     Dates: start: 2014

REACTIONS (3)
  - Depressed mood [Recovered/Resolved]
  - Aggression [Recovered/Resolved]
  - Suicidal ideation [Recovered/Resolved]

NARRATIVE: CASE EVENT DATE: 201409
